FAERS Safety Report 5840512-7 (Version None)
Quarter: 2008Q3

REPORT INFORMATION
  Report Type: 
  Country: None (occurrence: None)
  Receive Date: 20080807
  Receipt Date: 20080728
  Transmission Date: 20090109
  Serious: Yes (Life-Threatening, Hospitalization)
  Sender: FDA-Public Use
  Company Number: 2008BI019320

PATIENT
  Age: 40 Year
  Sex: Male
  Weight: 61.2356 kg

DRUGS (5)
  1. TYSABRI [Suspect]
     Indication: MULTIPLE SCLEROSIS
     Dosage: 300 MG; QM; IV
     Route: 042
     Dates: start: 20070426
  2. BACLOFEN (CON.) [Concomitant]
  3. ZOLOFT (CON.) [Concomitant]
  4. COPAXONE (PREV.) [Concomitant]
  5. NOVANTRONE (PREV.) [Concomitant]

REACTIONS (5)
  - CONCUSSION [None]
  - CONVULSION [None]
  - FALL [None]
  - HEAD INJURY [None]
  - LOSS OF CONSCIOUSNESS [None]
